FAERS Safety Report 8548931-5 (Version None)
Quarter: 2012Q3

REPORT INFORMATION
  Report Type: 
  Country: None (occurrence: None)
  Receive Date: 20120730
  Receipt Date: 20120725
  Transmission Date: 20120928
  Serious: Yes (Hospitalization)
  Sender: FDA-Public Use
  Company Number: IT-BRISTOL-MYERS SQUIBB COMPANY-16731747

PATIENT
  Age: 30 Year
  Sex: Female

DRUGS (3)
  1. HALOPERIDOL [Suspect]
     Route: 048
  2. ABILIFY [Suspect]
     Indication: PSYCHOTIC DISORDER
     Dosage: INTERRUPTED ON 19JUN2012
     Route: 048
     Dates: start: 20100529
  3. EN [Suspect]
     Route: 048

REACTIONS (8)
  - GENERALISED OEDEMA [None]
  - WEIGHT INCREASED [None]
  - HYPOCOMPLEMENTAEMIA [None]
  - ANAEMIA [None]
  - FACE OEDEMA [None]
  - BLOOD CREATININE INCREASED [None]
  - LEUKOPENIA [None]
  - ERYTHEMA [None]
